FAERS Safety Report 24530198 (Version 1)
Quarter: 2024Q4

REPORT INFORMATION
  Report Type: Spontaneous
  Country: CN (occurrence: CN)
  Receive Date: 20241021
  Receipt Date: 20241021
  Transmission Date: 20250115
  Serious: Yes (Other)
  Sender: DR REDDYS
  Company Number: None

PATIENT
  Age: 68 Year
  Sex: Male
  Weight: 65 kg

DRUGS (2)
  1. OLANZAPINE [Suspect]
     Active Substance: OLANZAPINE
     Indication: Restlessness
     Dosage: 5MG,QD
     Route: 048
     Dates: start: 20240828, end: 20240829
  2. OLANZAPINE [Suspect]
     Active Substance: OLANZAPINE
     Indication: Agitation

REACTIONS (1)
  - Tic [Not Recovered/Not Resolved]

NARRATIVE: CASE EVENT DATE: 20240829
